FAERS Safety Report 11723918 (Version 1)
Quarter: 2015Q4

REPORT INFORMATION
  Report Type: Other
  Country: US (occurrence: US)
  Receive Date: 20151111
  Receipt Date: 20151111
  Transmission Date: 20160304
  Serious: Yes (Other)
  Sender: FDA-Public Use
  Company Number: US-DEP_12983_2015

PATIENT
  Age: 66 Year
  Sex: Female
  Weight: 117 kg

DRUGS (5)
  1. PERCOCET [Concomitant]
     Active Substance: ACETAMINOPHEN\OXYCODONE HYDROCHLORIDE
     Dosage: 10/325 MG PRN; BACKED DOWN ON IT
     Route: 048
     Dates: start: 201510
  2. CHEMOTHERAPY [Concomitant]
     Active Substance: UNSPECIFIED INGREDIENT
     Indication: BREAST CANCER
     Dosage: THIRD CYCLE; DF
     Dates: start: 20151026, end: 20151026
  3. PERCOCET [Concomitant]
     Active Substance: ACETAMINOPHEN\OXYCODONE HYDROCHLORIDE
     Indication: PAIN
     Dosage: 10/325MG PRN
     Route: 048
     Dates: end: 201510
  4. SYNTHROID [Concomitant]
     Active Substance: LEVOTHYROXINE SODIUM
     Indication: HYPOTHYROIDISM
     Route: 048
     Dates: start: 1975
  5. NUCYNTA [Suspect]
     Active Substance: TAPENTADOL HYDROCHLORIDE
     Indication: PAIN
     Route: 048
     Dates: start: 20151023, end: 20151029

REACTIONS (7)
  - Appetite disorder [Not Recovered/Not Resolved]
  - Feeding disorder [None]
  - Gastric disorder [None]
  - Fear [Not Recovered/Not Resolved]
  - Drug dose titration not performed [Recovered/Resolved]
  - Anxiety [None]
  - Abdominal pain upper [Not Recovered/Not Resolved]

NARRATIVE: CASE EVENT DATE: 20151027
